FAERS Safety Report 23575666 (Version 1)
Quarter: 2024Q1

REPORT INFORMATION
  Report Type: Report from Study
  Country: GB (occurrence: GB)
  Receive Date: 20240228
  Receipt Date: 20240228
  Transmission Date: 20240409
  Serious: Yes (Hospitalization, Other)
  Sender: FDA-Public Use
  Company Number: GB-ABBVIE-5299829

PATIENT
  Age: 63 Year
  Sex: Male

DRUGS (25)
  1. ROPINIROLE [Suspect]
     Active Substance: ROPINIROLE
     Indication: Product used for unknown indication
     Route: 065
  2. ROPINIROLE [Suspect]
     Active Substance: ROPINIROLE
     Indication: Product used for unknown indication
     Route: 065
  3. BENSERAZIDE HYDROCHLORIDE\LEVODOPA [Concomitant]
     Active Substance: BENSERAZIDE HYDROCHLORIDE\LEVODOPA
     Indication: Product used for unknown indication
     Dosage: 6AM
  4. BENSERAZIDE HYDROCHLORIDE\LEVODOPA [Concomitant]
     Active Substance: BENSERAZIDE HYDROCHLORIDE\LEVODOPA
     Indication: Product used for unknown indication
     Dosage: 25/100MG
  5. BENSERAZIDE HYDROCHLORIDE\LEVODOPA [Concomitant]
     Active Substance: BENSERAZIDE HYDROCHLORIDE\LEVODOPA
     Indication: Product used for unknown indication
     Dosage: 12.5/50MG 1 OR 2;
     Route: 065
  6. BENSERAZIDE HYDROCHLORIDE\LEVODOPA [Concomitant]
     Active Substance: BENSERAZIDE HYDROCHLORIDE\LEVODOPA
     Indication: Product used for unknown indication
     Dosage: 62.5MGS?FREQUENCY TEXT: AT 2 PM; ;
  7. IPINNIA XL [Concomitant]
     Indication: Product used for unknown indication
     Dosage: FREQUENCY TEXT: 6AM, 12MGS 2PM;
     Route: 065
  8. CARBIDOPA\LEVODOPA [Suspect]
     Active Substance: CARBIDOPA\LEVODOPA
     Indication: Parkinson^s disease
     Dosage: MD: 10.3MLS, CR: 2.6MLS, ED:2.5MLS, 20MG/5MG?END DATE 2023; ;
     Route: 065
     Dates: start: 202307
  9. CARBIDOPA\LEVODOPA [Suspect]
     Active Substance: CARBIDOPA\LEVODOPA
     Indication: Parkinson^s disease
     Dosage: MD: 10.3, CR: 2.8 AND ED: 2.5  20MG/5MG,?FIRST ADMIN DAT: 2023; ;
     Route: 065
     Dates: start: 2023, end: 20230714
  10. CARBIDOPA\LEVODOPA [Suspect]
     Active Substance: CARBIDOPA\LEVODOPA
     Indication: Parkinson^s disease
     Dosage: MD 10.5 MLS; CR 3.2 MLS AND ED 2.5 MLS, LAST ADMIN DATE 2023; ;
     Route: 065
     Dates: start: 202306, end: 202306
  11. CARBIDOPA\LEVODOPA [Suspect]
     Active Substance: CARBIDOPA\LEVODOPA
     Indication: Parkinson^s disease
     Dosage: DUODOPA INFUSION ? 2.8MLS / HR CONTINUOUS RATE, EXTRA DOSE 2.5 AND BOOST 10.3?LAST ADMIN DATE JUL.
     Route: 065
     Dates: start: 20230714
  12. CARBIDOPA\LEVODOPA [Suspect]
     Active Substance: CARBIDOPA\LEVODOPA
     Indication: Parkinson^s disease
     Dosage: MD 10.5 MLS; CR 3.0 MLS AND ED 2.5 MLS, LAST ADMIN DATE 2023; ;
     Route: 065
     Dates: start: 202306, end: 202306
  13. CARBIDOPA\LEVODOPA [Suspect]
     Active Substance: CARBIDOPA\LEVODOPA
     Indication: Parkinson^s disease
     Dosage: CR: 2.9MLS  ED: 2.5MLS; ;
     Route: 065
  14. CARBIDOPA\LEVODOPA [Suspect]
     Active Substance: CARBIDOPA\LEVODOPA
     Indication: Parkinson^s disease
     Dosage: MD 10.5 MLS; CR 3.0 MLS AND ED 2.5 MLS
     Route: 065
     Dates: start: 202306, end: 2023
  15. CARBIDOPA\LEVODOPA [Suspect]
     Active Substance: CARBIDOPA\LEVODOPA
     Indication: Parkinson^s disease
     Dosage: MD:10.3, CR:  2.8, ED:2.5, 20MG/5MG; ;
     Route: 065
     Dates: start: 2023, end: 2023
  16. CARBIDOPA\LEVODOPA [Suspect]
     Active Substance: CARBIDOPA\LEVODOPA
     Indication: Parkinson^s disease
     Dosage: DUODOPA INFUSION 2.8MLS / HR CONTINUOUS RATE, EXTRA DOSE 2.5 AND BOOST 10.3
     Route: 065
     Dates: start: 2023, end: 2023
  17. ZOPICLONE [Concomitant]
     Active Substance: ZOPICLONE
     Indication: Product used for unknown indication
     Dosage: 3.75MG
     Route: 065
  18. BENSERAZIDE HYDROCHLORIDE\LEVODOPA [Concomitant]
     Active Substance: BENSERAZIDE HYDROCHLORIDE\LEVODOPA
     Indication: Product used for unknown indication
     Dosage: 12.5/50MG, DISPERSABLE
     Route: 065
  19. BENSERAZIDE HYDROCHLORIDE\LEVODOPA [Concomitant]
     Active Substance: BENSERAZIDE HYDROCHLORIDE\LEVODOPA
     Indication: Product used for unknown indication
     Dosage: 25/100MG MR
  20. MIRTAZAPINE [Concomitant]
     Active Substance: MIRTAZAPINE
     Indication: Product used for unknown indication
     Route: 065
  21. OPICAPONE [Concomitant]
     Active Substance: OPICAPONE
     Indication: Product used for unknown indication
     Route: 065
     Dates: end: 20230705
  22. AMANTADINE [Concomitant]
     Active Substance: AMANTADINE
     Indication: Product used for unknown indication
     Route: 065
  23. NAPROXEN [Concomitant]
     Active Substance: NAPROXEN
     Indication: Product used for unknown indication
     Route: 065
  24. ONGENTYS [Concomitant]
     Active Substance: OPICAPONE
     Indication: Product used for unknown indication
     Route: 065
     Dates: end: 20230705
  25. RASAGILINE [Concomitant]
     Active Substance: RASAGILINE\RASAGILINE MESYLATE
     Indication: Product used for unknown indication
     Route: 065

REACTIONS (47)
  - Pneumoperitoneum [Not Recovered/Not Resolved]
  - Fall [Unknown]
  - Fatigue [Unknown]
  - Dizziness [Unknown]
  - Limb discomfort [Unknown]
  - Musculoskeletal disorder [Unknown]
  - Unevaluable event [Unknown]
  - Malaise [Unknown]
  - Stoma site erythema [Recovered/Resolved]
  - Drug ineffective [Unknown]
  - Blood pressure abnormal [Unknown]
  - Freezing phenomenon [Recovered/Resolved]
  - Stoma site erythema [Recovering/Resolving]
  - Ligament sprain [Not Recovered/Not Resolved]
  - Unevaluable event [Unknown]
  - Dyskinesia [Recovered/Resolved]
  - Fall [Unknown]
  - Deformity [Unknown]
  - Gait disturbance [Unknown]
  - Depressed mood [Recovered/Resolved]
  - Asthenia [Not Recovered/Not Resolved]
  - Mobility decreased [Unknown]
  - Weight decreased [Recovering/Resolving]
  - Abnormal dreams [Not Recovered/Not Resolved]
  - Depression [Recovered/Resolved]
  - Jaw disorder [Recovered/Resolved]
  - Freezing phenomenon [Not Recovered/Not Resolved]
  - Hypoaesthesia [Recovered/Resolved]
  - Hypophagia [Unknown]
  - Pain in extremity [Not Recovered/Not Resolved]
  - Hospitalisation [Recovered/Resolved]
  - Speech disorder [Unknown]
  - Fatigue [Recovered/Resolved]
  - Parkinson^s disease [Unknown]
  - Dyspnoea [Unknown]
  - Incorrect dose administered [Unknown]
  - Medical device site discomfort [Not Recovered/Not Resolved]
  - Hypoaesthesia [Not Recovered/Not Resolved]
  - Insomnia [Recovered/Resolved]
  - Swelling [Unknown]
  - Pain [Recovered/Resolved]
  - Stoma site discharge [Not Recovered/Not Resolved]
  - Decreased appetite [Unknown]
  - Jaw disorder [Not Recovered/Not Resolved]
  - Weight decreased [Recovered/Resolved]
  - Unevaluable event [Unknown]
  - Therapeutic product effect incomplete [Not Recovered/Not Resolved]

NARRATIVE: CASE EVENT DATE: 20230101
